FAERS Safety Report 21209107 (Version 1)
Quarter: 2022Q3

REPORT INFORMATION
  Report Type: Spontaneous
  Country: CN (occurrence: None)
  Receive Date: 20220812
  Receipt Date: 20220812
  Transmission Date: 20221026
  Serious: Yes (Hospitalization, Other)
  Sender: FDA-Public Use
  Company Number: 2022A281063

PATIENT
  Age: 12293 Day
  Sex: Female
  Weight: 44 kg

DRUGS (2)
  1. TAGRISSO [Suspect]
     Active Substance: OSIMERTINIB
     Indication: Bone cancer
     Route: 048
     Dates: start: 20220622, end: 20220622
  2. BEVACIZUMAB [Suspect]
     Active Substance: BEVACIZUMAB
     Indication: Bone cancer
     Route: 042
     Dates: start: 20220622, end: 20220622

REACTIONS (2)
  - Lung neoplasm malignant [Unknown]
  - Myelosuppression [Recovering/Resolving]

NARRATIVE: CASE EVENT DATE: 20220719
